FAERS Safety Report 5811945-X (Version None)
Quarter: 2008Q3

REPORT INFORMATION
  Report Type: 
  Country: None (occurrence: None)
  Receive Date: 20080716
  Receipt Date: 20080707
  Transmission Date: 20090109
  Serious: Yes (Other)
  Sender: FDA-Public Use
  Company Number: US-ELI_LILLY_AND_COMPANY-US200805001357

PATIENT
  Age: 16 Year
  Sex: Male
  Weight: 59.864 kg

DRUGS (7)
  1. STRATTERA [Suspect]
     Indication: ATTENTION DEFICIT/HYPERACTIVITY DISORDER
     Dosage: 80 MG, 2/D
     Dates: start: 20030306, end: 20080505
  2. STRATTERA [Suspect]
     Dosage: UNK MG, UNK
     Dates: start: 20080501
  3. SEROQUEL [Concomitant]
     Dosage: 12.5 MG, UNK
  4. NASONEX [Concomitant]
     Route: 055
  5. SINGULAIR [Concomitant]
  6. ASMANEX TWISTHALER [Concomitant]
  7. LUVOX [Concomitant]
     Dosage: 200 MG, DAILY (1/D)

REACTIONS (8)
  - BLOOD PRESSURE INCREASED [None]
  - DEPRESSION [None]
  - DRUG DOSE OMISSION [None]
  - DRUG INEFFECTIVE [None]
  - HEADACHE [None]
  - HEART RATE INCREASED [None]
  - MOTION SICKNESS [None]
  - OBSESSIVE-COMPULSIVE DISORDER [None]
